FAERS Safety Report 5568890-7 (Version None)
Quarter: 2007Q4

REPORT INFORMATION
  Report Type: 
  Country: None (occurrence: None)
  Receive Date: 20071220
  Receipt Date: 20070305
  Transmission Date: 20080405
  Serious: No
  Sender: FDA-Public Use
  Company Number: A0641901A

PATIENT
  Age: 82 Year
  Sex: Male

DRUGS (17)
  1. AVODART [Suspect]
     Indication: MICTURITION DISORDER
     Dosage: .5MG PER DAY
     Route: 048
     Dates: start: 20070210
  2. FLOMAX [Concomitant]
  3. ALLOPURINOL [Concomitant]
  4. CALCITRIOL [Concomitant]
  5. ECOTRIN [Concomitant]
  6. IMDUR [Concomitant]
  7. LIPITOR [Concomitant]
  8. CALCIUM CHLORIDE [Concomitant]
  9. PRILOSEC [Concomitant]
  10. PLAVIX [Concomitant]
  11. PROCARDIA XL [Concomitant]
  12. UNKNOWN MEDICATION [Concomitant]
  13. TRICOR [Concomitant]
  14. PERAZINE [Concomitant]
  15. ZAROXOLYN [Concomitant]
  16. ZETIA [Concomitant]
  17. PROCRIT [Concomitant]

REACTIONS (1)
  - OEDEMA PERIPHERAL [None]
